FAERS Safety Report 9174320 (Version 4)
Quarter: 2013Q4

REPORT INFORMATION
  Report Type: Report from Study
  Country: BR (occurrence: BR)
  Receive Date: 20130320
  Receipt Date: 20131023
  Transmission Date: 20140711
  Serious: Yes (Hospitalization, Other)
  Sender: FDA-Public Use
  Company Number: PHHY2013BR025790

PATIENT
  Sex: Male

DRUGS (5)
  1. DIOVAN [Suspect]
     Indication: HYPERTENSION
     Dosage: 2 DF (320 MG), DAILY
     Dates: start: 2007
  2. DIOVAN [Suspect]
     Dosage: 2 DF (320 MG), DAILY
  3. ALLOPURINOL [Suspect]
     Dosage: 30 MG, UNK
  4. ACETYLSALICYLIC ACID [Concomitant]
     Dosage: UNK UKN, UNK
     Route: 048
  5. CALCIUM CARBONATE [Concomitant]
     Dosage: UNK UKN, UNK
     Route: 048

REACTIONS (6)
  - Diabetes mellitus [Not Recovered/Not Resolved]
  - Cerebrovascular accident [Recovered/Resolved]
  - Pancreatitis [Recovering/Resolving]
  - Cholelithiasis [Not Recovered/Not Resolved]
  - Cough [Recovered/Resolved]
  - Hypertension [Recovered/Resolved]
